FAERS Safety Report 15719146 (Version 1)
Quarter: 2018Q4

REPORT INFORMATION
  Report Type: Spontaneous
  Country: JP (occurrence: JP)
  Receive Date: 20181213
  Receipt Date: 20181213
  Transmission Date: 20190205
  Serious: Yes (Hospitalization)
  Sender: FDA-Public Use
  Company Number: JP-ELI_LILLY_AND_COMPANY-JP201812004077

PATIENT
  Age: 85 Year
  Sex: Female

DRUGS (3)
  1. DULOXETINE HYDROCHLORIDE. [Suspect]
     Active Substance: DULOXETINE HYDROCHLORIDE
     Indication: BACK PAIN
     Dosage: UNK
     Route: 048
     Dates: start: 201810, end: 20181104
  2. DICLOFENAC [Concomitant]
     Active Substance: DICLOFENAC
     Indication: HERPES ZOSTER
     Dosage: UNK
     Dates: start: 201810
  3. DULOXETINE HYDROCHLORIDE. [Suspect]
     Active Substance: DULOXETINE HYDROCHLORIDE
     Dosage: 40 MG, DAILY
     Route: 048
     Dates: start: 20181105, end: 20181114

REACTIONS (2)
  - Decreased appetite [Recovering/Resolving]
  - Parkinsonian gait [Not Recovered/Not Resolved]

NARRATIVE: CASE EVENT DATE: 20181105
